FAERS Safety Report 19154872 (Version 2)
Quarter: 2021Q2

REPORT INFORMATION
  Report Type: Spontaneous
  Country: GB (occurrence: GB)
  Receive Date: 20210420
  Receipt Date: 20210420
  Transmission Date: 20210717
  Serious: Yes (Death)
  Sender: FDA-Public Use
  Company Number: GB-ABBVIE-21K-167-3865187-00

PATIENT
  Age: 56 Year
  Sex: Female
  Weight: 72 kg

DRUGS (7)
  1. THYROXINE [Concomitant]
     Active Substance: LEVOTHYROXINE
     Indication: ILL-DEFINED DISORDER
  2. TOCILIZUMAB. [Concomitant]
     Active Substance: TOCILIZUMAB
     Indication: ILL-DEFINED DISORDER
  3. LANSOPRAZOLE. [Concomitant]
     Active Substance: LANSOPRAZOLE
     Indication: ILL-DEFINED DISORDER
  4. RINVOQ [Suspect]
     Active Substance: UPADACITINIB
     Indication: RHEUMATOID ARTHRITIS
     Route: 048
     Dates: start: 20200920, end: 20210127
  5. AZATHIOPRINE SODIUM. [Concomitant]
     Active Substance: AZATHIOPRINE SODIUM
     Indication: ILL-DEFINED DISORDER
  6. FLUOXETINE [Concomitant]
     Active Substance: FLUOXETINE HYDROCHLORIDE
     Indication: ILL-DEFINED DISORDER
  7. PREDNISOLONE. [Concomitant]
     Active Substance: PREDNISOLONE
     Indication: ILL-DEFINED DISORDER

REACTIONS (1)
  - Renal cancer metastatic [Fatal]

NARRATIVE: CASE EVENT DATE: 20210125
